FAERS Safety Report 6491672-9 (Version None)
Quarter: 2009Q4

REPORT INFORMATION
  Report Type: 
  Country: None (occurrence: None)
  Receive Date: 20091211
  Receipt Date: 20091207
  Transmission Date: 20100525
  Serious: Yes (Hospitalization)
  Sender: FDA-Public Use
  Company Number: US-MERCK-0912USA00619

PATIENT
  Age: 87 Year
  Sex: Female

DRUGS (4)
  1. FOSAMAX [Suspect]
     Indication: OSTEOPOROSIS
     Route: 048
  2. SYNTHROID [Concomitant]
     Route: 065
  3. DIGOXIN [Concomitant]
     Route: 065
  4. DILTIAZEM HYDROCHLORIDE [Concomitant]
     Route: 065

REACTIONS (1)
  - BLOOD CREATININE DECREASED [None]
